FAERS Safety Report 5903022-4 (Version None)
Quarter: 2008Q3

REPORT INFORMATION
  Report Type: 
  Country: None (occurrence: None)
  Receive Date: 20080929
  Receipt Date: 20080929
  Transmission Date: 20090109
  Serious: Yes (Other)
  Sender: FDA-Public Use
  Company Number: None

PATIENT
  Age: 36 Year
  Sex: Female
  Weight: 55.3388 kg

DRUGS (6)
  1. LAMICTAL [Suspect]
  2. ALPRAZOLAM [Concomitant]
  3. CLONAZEPAM [Concomitant]
  4. TEMAZEPAM [Concomitant]
  5. SEROQUEL [Concomitant]
  6. ROZEREM [Concomitant]

REACTIONS (4)
  - ALOPECIA [None]
  - HAIR TEXTURE ABNORMAL [None]
  - PHOTOSENSITIVITY REACTION [None]
  - TRICHORRHEXIS [None]
